FAERS Safety Report 8551262-0 (Version None)
Quarter: 2012Q3

REPORT INFORMATION
  Report Type: 
  Country: None (occurrence: None)
  Receive Date: 20120730
  Receipt Date: 20120720
  Transmission Date: 20120928
  Serious: Yes (Congenital Anomaly)
  Sender: FDA-Public Use
  Company Number: DK-MUTUAL PHARMACEUTICAL COMPANY, INC.-DXCY20120008

PATIENT
  Sex: 0

DRUGS (1)
  1. DOXYCYCLINE HCL [Suspect]
     Indication: FOETAL EXPOSURE DURING PREGNANCY
     Route: 064

REACTIONS (2)
  - CLEFT LIP [None]
  - CLEFT PALATE [None]
